FAERS Safety Report 17114513 (Version 2)
Quarter: 2020Q1

REPORT INFORMATION
  Report Type: Report from Study
  Country: US (occurrence: US)
  Receive Date: 20191205
  Receipt Date: 20200108
  Transmission Date: 20200409
  Serious: Yes (Other)
  Sender: FDA-Public Use
  Company Number: US-ROCHE-2485671

PATIENT
  Sex: Female

DRUGS (19)
  1. AMANTADINE. [Concomitant]
     Active Substance: AMANTADINE HYDROCHLORIDE
     Dosage: BY MOUTH
     Route: 048
  2. MYRBETRIQ [Concomitant]
     Active Substance: MIRABEGRON
     Dosage: BY MOUTH
     Route: 048
     Dates: start: 20190425, end: 20190916
  3. BACLOFEN. [Concomitant]
     Active Substance: BACLOFEN
     Dosage: TAKE BY MOUTH NIGHTLY
     Route: 048
  4. DAPSONE. [Concomitant]
     Active Substance: DAPSONE
     Dosage: BY MOUTH EVERY OTHER DAY
     Route: 048
  5. ZOLOFT [Concomitant]
     Active Substance: SERTRALINE HYDROCHLORIDE
     Dosage: 1.5 TABLETS BY MOUTH
     Route: 048
  6. GLATIRAMER [Concomitant]
     Active Substance: GLATIRAMER
     Dosage: FORM STRENGTH: 40 MG/ML SYRINGE?UNDER THE SKIN
     Route: 065
  7. CALCIUM CARBONATE. [Concomitant]
     Active Substance: CALCIUM CARBONATE
     Dosage: BY MOUTH
     Route: 048
  8. CALCIUM [Concomitant]
     Active Substance: CALCIUM
     Dosage: BY MOUTH
     Route: 048
  9. NEURONTIN [Concomitant]
     Active Substance: GABAPENTIN
     Dosage: BY MOUTH TWO TIMES A DAY
     Route: 048
  10. LEVOTHYROXINE. [Concomitant]
     Active Substance: LEVOTHYROXINE
     Dosage: FORM STRENGTH: 112 MCG ?BY MOUTH
     Route: 048
  11. DITROPAN [Concomitant]
     Active Substance: OXYBUTYNIN CHLORIDE
     Dosage: BY MOUTH 2, 2 TIMES A DAY
     Route: 048
  12. OCREVUS [Suspect]
     Active Substance: OCRELIZUMAB
     Indication: RELAPSING MULTIPLE SCLEROSIS
     Dosage: ONGOING: UNKNOWN?FORM STRENGTH: 30 MG/ML?INFUSE 600 MG IN TO A VENOUS CATHETER
     Route: 065
     Dates: start: 20171013
  13. DOSTINEX [Concomitant]
     Active Substance: CABERGOLINE
     Dosage: BY MOUTH
     Route: 048
  14. COENZYME Q10 [Concomitant]
     Active Substance: UBIDECARENONE
     Dosage: BY MOUTH
     Route: 048
  15. CYCLOBENZAPRINE. [Concomitant]
     Active Substance: CYCLOBENZAPRINE
     Indication: MUSCLE SPASTICITY
     Dosage: AT BED TIME
     Route: 065
  16. ASCORBIC ACID. [Concomitant]
     Active Substance: ASCORBIC ACID
     Dosage: BY MOUTH
     Route: 048
  17. CHLORTRIMETON [Concomitant]
     Active Substance: CHLORPHENIRAMINE MALEATE
     Dosage: BY MOUTH
     Route: 048
  18. CYANOCOBALAMIN. [Concomitant]
     Active Substance: CYANOCOBALAMIN
     Dosage: FORM STRENGTH: 100 MCG?DOSE: 1000 MCG BY MOUTH
     Route: 048
  19. PRILOSEC [Concomitant]
     Active Substance: OMEPRAZOLE MAGNESIUM
     Dosage: BY MOUTH 2 TWO TIMES A DAY
     Route: 048

REACTIONS (3)
  - Wheezing [Unknown]
  - Bronchitis [Recovered/Resolved]
  - Immunodeficiency [Unknown]
